FAERS Safety Report 9293059 (Version 1)
Quarter: 2013Q1

REPORT INFORMATION
  Report Type: Spontaneous
  Country: US (occurrence: None)
  Receive Date: 20121214
  Receipt Date: 20121214
  Transmission Date: 20140127
  Serious: Yes (Hospitalization, Disabling, Other)
  Sender: FDA-Public Use
  Company Number: 1203USA02933

PATIENT
  Age: 72 Year
  Sex: Female
  Weight: 73 kg

DRUGS (5)
  1. JANUVIA [Suspect]
     Indication: TYPE 2 DIABETES MELLITUS
     Route: 048
     Dates: start: 20110316, end: 201203
  2. GLUCOFAGE (METFORMIN HYDROCHLORIDE) [Concomitant]
  3. MEVACOR (LOVASTATIN) [Concomitant]
  4. CELEBREX (CELECOXIB) [Concomitant]
  5. DIHYDROCODEINE PHOSPHATE (DIHYDROCODEINE PHOSPHATE) [Concomitant]

REACTIONS (1)
  - Pancreatitis chronic [None]
